FAERS Safety Report 6300198-4 (Version None)
Quarter: 2009Q3

REPORT INFORMATION
  Report Type: 
  Country: None (occurrence: None)
  Receive Date: 20090804
  Receipt Date: 20090723
  Transmission Date: 20100115
  Serious: Yes (Life-Threatening)
  Sender: FDA-Public Use
  Company Number: 2009AL004941

PATIENT
  Age: 83 Year
  Sex: Male

DRUGS (5)
  1. DOXAZOSIN MESYLATE [Suspect]
     Indication: HYPERTENSION
     Dosage: 4 MG;QD;PO
     Route: 048
     Dates: end: 20090702
  2. ACETYLSALICYLIC ACID [Concomitant]
  3. BENDROFLUMETHIAZIDE [Concomitant]
  4. FINASTERIDE [Concomitant]
  5. BISOPROLOL [Concomitant]

REACTIONS (7)
  - CHEST PAIN [None]
  - CONTUSION [None]
  - DIZZINESS [None]
  - EPISTAXIS [None]
  - SNEEZING [None]
  - THROMBOCYTOPENIA [None]
  - TREMOR [None]
